FAERS Safety Report 6697265-2 (Version None)
Quarter: 2010Q2

REPORT INFORMATION
  Report Type: 
  Country: None (occurrence: None)
  Receive Date: 20100426
  Receipt Date: 20100416
  Transmission Date: 20101027
  Serious: Yes (Death, Hospitalization)
  Sender: FDA-Public Use
  Company Number: DE-PFIZER INC-2008072282

PATIENT
  Age: 68 Year
  Sex: Male

DRUGS (7)
  1. IRINOTECAN HCL [Suspect]
     Indication: COLORECTAL CANCER METASTATIC
     Dosage: 380 MG, CYCLIC, EVERY 2  WEEKS
     Route: 042
     Dates: start: 20080515
  2. FLUOROURACIL [Suspect]
     Indication: COLORECTAL CANCER METASTATIC
     Dosage: 844 MG, CYCLIC, EVERY 2 WEEKS
     Route: 040
     Dates: start: 20080515
  3. FLUOROURACIL [Suspect]
     Dosage: 5064 MG, CYCLIC, EVERY 2 WEEKS
     Route: 042
     Dates: start: 20080515
  4. SUNITINIB MALATE [Suspect]
     Indication: COLORECTAL CANCER METASTATIC
     Dosage: 37.5 MG, 1X/DAY
     Route: 048
     Dates: start: 20080515, end: 20080727
  5. CALCIUM FOLINATE [Suspect]
     Indication: COLORECTAL CANCER METASTATIC
     Dosage: 844 MG, CYCLIC, EVERY 2 WEEKS
     Route: 042
     Dates: start: 20080515
  6. GRANISETRON [Concomitant]
     Route: 048
     Dates: start: 20080515
  7. ATROPIN [Concomitant]
     Route: 048
     Dates: start: 20080515

REACTIONS (1)
  - PULMONARY EMBOLISM [None]
